FAERS Safety Report 19349493 (Version 1)
Quarter: 2021Q2

REPORT INFORMATION
  Report Type: Spontaneous
  Country: US (occurrence: US)
  Receive Date: 20210531
  Receipt Date: 20210531
  Transmission Date: 20210717
  Serious: Yes (Life-Threatening, Hospitalization, Other)
  Sender: FDA-Public Use
  Company Number: US-STRIDES ARCOLAB LIMITED-2020SP006228

PATIENT
  Age: 68 Year
  Sex: Male

DRUGS (2)
  1. VANCOMYCIN [Suspect]
     Active Substance: VANCOMYCIN
     Indication: BACTERAEMIA
  2. VANCOMYCIN [Suspect]
     Active Substance: VANCOMYCIN
     Indication: STAPHYLOCOCCAL INFECTION
     Dosage: UNK
     Route: 065

REACTIONS (9)
  - Haematuria [Unknown]
  - Henoch-Schonlein purpura [Recovered/Resolved]
  - Renal impairment [Unknown]
  - Abdominal pain [Unknown]
  - Oliguria [Unknown]
  - Proteinuria [Unknown]
  - Nephritis [Recovered/Resolved]
  - Rash pruritic [Unknown]
  - Haematochezia [Unknown]
